FAERS Safety Report 15429239 (Version 1)
Quarter: 2018Q3

REPORT INFORMATION
  Report Type: Spontaneous
  Country: US (occurrence: US)
  Receive Date: 20180920
  Receipt Date: 20180920
  Transmission Date: 20181010
  Serious: No
  Sender: FDA-Public Use
  Company Number: None

PATIENT
  Age: 63 Year
  Sex: Female

DRUGS (1)
  1. AFINITOR [Suspect]
     Active Substance: EVEROLIMUS
     Route: 048
     Dates: start: 20180817

REACTIONS (8)
  - Bronchitis [None]
  - Drug dose omission [None]
  - Nausea [None]
  - Decreased appetite [None]
  - Insurance issue [None]
  - Nasopharyngitis [None]
  - Rash [None]
  - Blood glucose increased [None]

NARRATIVE: CASE EVENT DATE: 20180919
